FAERS Safety Report 6874667-2 (Version None)
Quarter: 2010Q3

REPORT INFORMATION
  Report Type: 
  Country: None (occurrence: None)
  Receive Date: 20100722
  Receipt Date: 20100709
  Transmission Date: 20110219
  Serious: Yes (Other)
  Sender: FDA-Public Use
  Company Number: 7007670

PATIENT
  Age: 56 Year
  Sex: Female

DRUGS (5)
  1. REBIF [Suspect]
     Indication: MULTIPLE SCLEROSIS
     Dosage: 44 MCG, 3 IN 1 WK, SUBCUTANEOUS
     Route: 058
     Dates: start: 20081201
  2. LISINOPRIL [Suspect]
     Indication: HYPERTENSION
     Dosage: \
  3. CYMBALTA [Concomitant]
  4. WELLBUTRIN [Concomitant]
  5. VITAMIN WITH IRON (ALL OTHER THERAPEUTIC PRODUCTS0 [Concomitant]

REACTIONS (10)
  - ANAEMIA [None]
  - CONCUSSION [None]
  - FALL [None]
  - HEADACHE [None]
  - HYPERTENSION [None]
  - HYPOTENSION [None]
  - INJECTION SITE ERYTHEMA [None]
  - INJECTION SITE PAIN [None]
  - LOSS OF CONSCIOUSNESS [None]
  - OPEN WOUND [None]
